FAERS Safety Report 7353915 (Version 5)
Quarter: 2013Q1

REPORT INFORMATION
  Report Type: Spontaneous
  Country: JP (occurrence: JP)
  Receive Date: 20100413
  Receipt Date: 20130124
  Transmission Date: 20140127
  Serious: Yes (Life-Threatening)
  Sender: FDA-Public Use
  Company Number: PHHY2010JP11226

PATIENT
  Sex: 0
  Weight: 19 kg

DRUGS (23)
  1. NEORAL [Suspect]
     Indication: HISTIOCYTOSIS HAEMATOPHAGIC
     Dosage: 100 MG, DAILY
     Route: 048
     Dates: start: 20090206, end: 20090209
  2. NEORAL [Suspect]
     Dosage: 140 MG, DAILY
     Route: 048
     Dates: start: 20090210, end: 20090213
  3. NEORAL [Suspect]
     Dosage: 180 MG, DAILY
     Route: 048
     Dates: start: 20090214, end: 20090216
  4. NEORAL [Suspect]
     Dosage: 220 MG, DAILY
     Route: 048
     Dates: start: 20090217, end: 20090219
  5. PREDONINE [Concomitant]
     Indication: HISTIOCYTOSIS HAEMATOPHAGIC
     Dosage: 45 MG, UNK
     Route: 042
     Dates: start: 20090102
  6. PREDONINE [Concomitant]
     Dosage: 30 MG, UNK
     Route: 042
  7. PREDONINE [Concomitant]
     Dosage: 20 MG, UNK
     Route: 042
  8. PREDONINE [Concomitant]
     Dosage: 15 MG, UNK
     Route: 042
  9. PREDONINE [Concomitant]
     Dosage: 15 MG, UNK
     Route: 042
  10. PREDONINE [Concomitant]
     Dosage: 10 MG, UNK
     Route: 042
     Dates: end: 20090604
  11. PREDONINE [Concomitant]
     Dosage: 5 MG, UNK
     Route: 048
     Dates: start: 20090606
  12. PREDONINE [Concomitant]
     Dosage: 2.5 MG, UNK
     Route: 048
  13. PREDONINE [Concomitant]
     Dosage: 1.5 MG, UNK
     Route: 048
     Dates: end: 20090628
  14. DECADRON [Concomitant]
     Indication: HISTIOCYTOSIS HAEMATOPHAGIC
     Dosage: 7 MG, UNK
     Route: 042
     Dates: start: 20090201
  15. DECADRON [Concomitant]
     Dosage: 5 MG, UNK
     Route: 042
  16. DECADRON [Concomitant]
     Dosage: 4 MG, UNK
     Route: 042
  17. DECADRON [Concomitant]
     Dosage: 7 MG, UNK
     Route: 042
  18. DECADRON [Concomitant]
     Dosage: 6 MG, UNK
     Route: 042
  19. DECADRON [Concomitant]
     Dosage: 4 MG, UNK
     Route: 042
  20. DECADRON [Concomitant]
     Dosage: 3.5 MG, UNK
     Route: 042
  21. DECADRON [Concomitant]
     Dosage: 3 MG, UNK
     Route: 042
  22. DECADRON [Concomitant]
     Dosage: 2.5 MG, UNK
     Route: 042
  23. DECADRON [Concomitant]
     Dosage: 2 MG, UNK
     Route: 042
     Dates: end: 20090503

REACTIONS (19)
  - Posterior reversible encephalopathy syndrome [Recovered/Resolved]
  - Altered state of consciousness [Recovered/Resolved]
  - Convulsion [Recovered/Resolved]
  - Unresponsive to stimuli [Recovered/Resolved]
  - Pupillary reflex impaired [Recovered/Resolved]
  - Eye movement disorder [Recovered/Resolved]
  - Respiratory disorder [Recovered/Resolved]
  - Muscular weakness [Recovered/Resolved]
  - Haematocrit decreased [Unknown]
  - C-reactive protein increased [Unknown]
  - Serum ferritin increased [Unknown]
  - Blood lactate dehydrogenase increased [Unknown]
  - Gamma-glutamyltransferase increased [Unknown]
  - Haemoglobin decreased [Unknown]
  - White blood cell count decreased [Unknown]
  - Neutrophil count increased [Unknown]
  - Platelet count increased [Unknown]
  - Aspartate aminotransferase increased [Unknown]
  - Alanine aminotransferase increased [Unknown]
